FAERS Safety Report 12504329 (Version 4)
Quarter: 2018Q4

REPORT INFORMATION
  Report Type: Spontaneous
  Country: CA (occurrence: CA)
  Receive Date: 20160628
  Receipt Date: 20181004
  Transmission Date: 20190204
  Serious: Yes (Other)
  Sender: FDA-Public Use
  Company Number: CA-ASTRAZENECA-2016SE68039

PATIENT
  Age: 60 Year
  Sex: Female
  Weight: 64 kg

DRUGS (32)
  1. PANTOPRAZOLE SODIUM. [Suspect]
     Active Substance: PANTOPRAZOLE SODIUM
     Indication: PRODUCT USED FOR UNKNOWN INDICATION
     Dosage: PANTOPRAZOLE
     Route: 065
  2. LOSEC [Suspect]
     Active Substance: OMEPRAZOLE
     Indication: PRODUCT USED FOR UNKNOWN INDICATION
     Route: 048
  3. LOSEC [Suspect]
     Active Substance: OMEPRAZOLE
     Indication: PRODUCT USED FOR UNKNOWN INDICATION
     Dosage: OMEPRAZOLE
     Route: 048
  4. METHOTREXATE SODIUM. [Suspect]
     Active Substance: METHOTREXATE SODIUM
     Indication: RHEUMATOID ARTHRITIS
     Dosage: METHOTREXATE
     Route: 065
  5. CYCLOBENZAPRINE. [Suspect]
     Active Substance: CYCLOBENZAPRINE
     Indication: PRODUCT USED FOR UNKNOWN INDICATION
     Route: 065
  6. RITUXAN [Suspect]
     Active Substance: RITUXIMAB
     Indication: RHEUMATOID ARTHRITIS
     Dosage: UNKNOWN
     Route: 042
  7. AZOPT [Concomitant]
     Active Substance: BRINZOLAMIDE
     Route: 047
  8. XALATAN [Concomitant]
     Active Substance: LATANOPROST
     Route: 047
  9. ELAVIL [Concomitant]
     Active Substance: AMITRIPTYLINE HYDROCHLORIDE
  10. M-ESLON [Suspect]
     Active Substance: MORPHINE SULFATE
     Indication: PRODUCT USED FOR UNKNOWN INDICATION
     Dosage: MORPHINE HYDROCHLORIDE
     Route: 065
  11. ACETAMINOPHEN. [Concomitant]
     Active Substance: ACETAMINOPHEN
     Dosage: 650.0MG UNKNOWN
     Dates: start: 20140815
  12. CYMBALTA [Concomitant]
     Active Substance: DULOXETINE HYDROCHLORIDE
  13. OXYNEO [Concomitant]
     Active Substance: OXYCODONE
  14. SENOKOT [Concomitant]
     Active Substance: SENNOSIDES
  15. VENTOLIN [Concomitant]
     Active Substance: ALBUTEROL SULFATE
  16. NEXIUM [Suspect]
     Active Substance: ESOMEPRAZOLE MAGNESIUM
     Indication: PRODUCT USED FOR UNKNOWN INDICATION
     Route: 048
  17. ACTEMRA [Suspect]
     Active Substance: TOCILIZUMAB
     Indication: RHEUMATOID ARTHRITIS
     Route: 042
     Dates: start: 20130312
  18. ACTEMRA [Suspect]
     Active Substance: TOCILIZUMAB
     Indication: RHEUMATOID ARTHRITIS
     Route: 042
     Dates: start: 20130424, end: 20130611
  19. ACETAMINOPHEN. [Concomitant]
     Active Substance: ACETAMINOPHEN
     Dosage: EMPRACET
  20. BETAXOLOL HYDROCHLORIDE. [Concomitant]
     Active Substance: BETAXOLOL HYDROCHLORIDE
  21. COUMADIN [Concomitant]
     Active Substance: WARFARIN SODIUM
  22. DOCUSATE [Concomitant]
     Active Substance: DOCUSATE
  23. RITUXAN [Suspect]
     Active Substance: RITUXIMAB
     Indication: RHEUMATOID ARTHRITIS
     Dosage: 1000.0MG UNKNOWN
     Route: 042
     Dates: start: 20140815, end: 20150928
  24. EPINEPHRINE. [Concomitant]
     Active Substance: EPINEPHRINE
  25. DIPHENHYDRAMINE. [Concomitant]
     Active Substance: DIPHENHYDRAMINE
     Dosage: 50.0MG UNKNOWN
     Route: 042
     Dates: start: 20140815
  26. NEXIUM 24HR [Suspect]
     Active Substance: ESOMEPRAZOLE MAGNESIUM
     Dosage: UNK
     Route: 048
  27. PANTOPRAZOLE SODIUM. [Suspect]
     Active Substance: PANTOPRAZOLE SODIUM
     Indication: PRODUCT USED FOR UNKNOWN INDICATION
     Route: 065
  28. M-ESLON [Suspect]
     Active Substance: MORPHINE SULFATE
     Indication: PRODUCT USED FOR UNKNOWN INDICATION
     Route: 065
  29. M-ESLON [Suspect]
     Active Substance: MORPHINE SULFATE
     Indication: PRODUCT USED FOR UNKNOWN INDICATION
     Dosage: STATEX
     Route: 065
  30. SYNTHROID [Concomitant]
     Active Substance: LEVOTHYROXINE SODIUM
  31. METHOTREXATE SODIUM. [Suspect]
     Active Substance: METHOTREXATE SODIUM
     Indication: RHEUMATOID ARTHRITIS
     Route: 065
  32. ARAVA [Concomitant]
     Active Substance: LEFLUNOMIDE

REACTIONS (8)
  - Fungal infection [Not Recovered/Not Resolved]
  - Swelling [Not Recovered/Not Resolved]
  - Haemoglobin decreased [Not Recovered/Not Resolved]
  - Nasopharyngitis [Not Recovered/Not Resolved]
  - Diarrhoea [Not Recovered/Not Resolved]
  - Pain [Not Recovered/Not Resolved]
  - Hyperaesthesia [Not Recovered/Not Resolved]
  - Muscular weakness [Not Recovered/Not Resolved]

NARRATIVE: CASE EVENT DATE: 2015
